FAERS Safety Report 5909282-8 (Version None)
Quarter: 2008Q4

REPORT INFORMATION
  Report Type: 
  Country: None (occurrence: None)
  Receive Date: 20081006
  Receipt Date: 20081002
  Transmission Date: 20090506
  Serious: Yes (Hospitalization)
  Sender: FDA-Public Use
  Company Number: FR-WYE-G02275408

PATIENT
  Sex: Female

DRUGS (3)
  1. ADVIL [Suspect]
     Dosage: UNSPECIFIED OVERDOSE AMOUNT
     Route: 048
     Dates: start: 20080806, end: 20080806
  2. DIAZEPAM [Suspect]
     Dosage: UNSPECIFIED OVERDOSE AMOUNT
     Route: 048
     Dates: start: 20080806, end: 20080806
  3. ACETAMINOPHEN [Suspect]
     Dosage: UNSPECIFIED OVERDOSE AMOUNT
     Route: 048
     Dates: start: 20080806, end: 20080806

REACTIONS (4)
  - AGITATION [None]
  - MULTIPLE DRUG OVERDOSE INTENTIONAL [None]
  - SOMNOLENCE [None]
  - SUICIDE ATTEMPT [None]
